FAERS Safety Report 13601162 (Version 1)
Quarter: 2017Q2

REPORT INFORMATION
  Report Type: Spontaneous
  Country: DE (occurrence: DE)
  Receive Date: 20170601
  Receipt Date: 20170601
  Transmission Date: 20170830
  Serious: Yes (Other)
  Sender: FDA-Public Use
  Company Number: DE-DRREDDYS-GER/GER/17/0091008

PATIENT
  Age: 69 Year
  Sex: Female
  Weight: 90 kg

DRUGS (14)
  1. SIMVABETA 20 MG FILMTABLETTEN [Suspect]
     Active Substance: SIMVASTATIN
     Route: 048
     Dates: start: 20170521
  2. MARCUMAR [Suspect]
     Active Substance: PHENPROCOUMON
     Route: 048
     Dates: start: 20170521
  3. EUTHYROX 75 MIKROGRAMM [Suspect]
     Active Substance: LEVOTHYROXINE SODIUM
     Indication: PRODUCT USED FOR UNKNOWN INDICATION
     Route: 048
  4. BONDIOL 0,25MYG WEICHKAPSELN RP [Suspect]
     Active Substance: ALFACALCIDOL
     Indication: PRODUCT USED FOR UNKNOWN INDICATION
     Route: 048
  5. MIRTAZAPIN 15 [Suspect]
     Active Substance: MIRTAZAPINE
     Dosage: 3.5-7 TABLETS
     Route: 048
     Dates: start: 20170521
  6. SIMVABETA 20 MG FILMTABLETTEN [Suspect]
     Active Substance: SIMVASTATIN
     Indication: PRODUCT USED FOR UNKNOWN INDICATION
     Route: 048
  7. LERCANIDIPIN 10 [Suspect]
     Active Substance: LERCANIDIPINE
     Route: 048
     Dates: start: 20170521
  8. MIRTAZAPIN 15 [Suspect]
     Active Substance: MIRTAZAPINE
     Indication: PRODUCT USED FOR UNKNOWN INDICATION
     Route: 048
  9. OSVAREN [Suspect]
     Active Substance: CALCIUM ACETATE\MAGNESIUM CARBONATE
     Indication: PRODUCT USED FOR UNKNOWN INDICATION
     Route: 048
  10. OSVAREN [Suspect]
     Active Substance: CALCIUM ACETATE\MAGNESIUM CARBONATE
     Route: 048
     Dates: start: 20170521
  11. BONDIOL 0,25MYG WEICHKAPSELN RP [Suspect]
     Active Substance: ALFACALCIDOL
     Route: 048
     Dates: start: 20170521
  12. LERCANIDIPIN 10 [Suspect]
     Active Substance: LERCANIDIPINE
     Indication: HYPERTENSION
     Route: 048
  13. MARCUMAR [Suspect]
     Active Substance: PHENPROCOUMON
     Indication: AORTIC VALVE REPLACEMENT
     Route: 048
  14. EUTHYROX 75 MIKROGRAMM [Suspect]
     Active Substance: LEVOTHYROXINE SODIUM
     Route: 048
     Dates: start: 20170521

REACTIONS (4)
  - Intentional overdose [Unknown]
  - Blood pressure increased [None]
  - Heart rate increased [None]
  - Tachycardia [Unknown]

NARRATIVE: CASE EVENT DATE: 20170521
